FAERS Safety Report 4935402-8 (Version None)
Quarter: 2006Q1

REPORT INFORMATION
  Report Type: 
  Country: None (occurrence: None)
  Receive Date: 20060307
  Receipt Date: 20050802
  Transmission Date: 20060701
  Serious: No
  Sender: FDA-Public Use
  Company Number: US-GLAXOSMITHKLINE-A0568648A

PATIENT
  Sex: Female

DRUGS (4)
  1. REQUIP [Suspect]
     Indication: RESTLESS LEGS SYNDROME
     Dosage: 1.5MG PER DAY
     Route: 048
  2. NEURONTIN [Concomitant]
  3. ZOLOFT [Concomitant]
  4. OXYCODONE [Concomitant]

REACTIONS (2)
  - NAUSEA [None]
  - VOMITING [None]
